FAERS Safety Report 9449709 (Version 1)
Quarter: 2013Q3

REPORT INFORMATION
  Report Type: Spontaneous
  Country: US (occurrence: US)
  Receive Date: 20130809
  Receipt Date: 20130809
  Transmission Date: 20140515
  Serious: No
  Sender: FDA-Public Use
  Company Number: US-JNJFOC-20130716716

PATIENT
  Age: 50 Year
  Sex: Female
  Weight: 61.24 kg

DRUGS (1)
  1. DURAGESIC [Suspect]
     Indication: ARTHRALGIA
     Route: 062

REACTIONS (3)
  - Inappropriate schedule of drug administration [Not Recovered/Not Resolved]
  - Product outer packaging issue [Unknown]
  - Product packaging quantity issue [Unknown]
